FAERS Safety Report 4421585-5 (Version None)
Quarter: 2004Q3

REPORT INFORMATION
  Report Type: 
  Country: None (occurrence: None)
  Receive Date: 20040804
  Receipt Date: 20040714
  Transmission Date: 20050211
  Serious: Yes (Other)
  Sender: FDA-Public Use
  Company Number: A03200402315

PATIENT
  Sex: Female

DRUGS (1)
  1. AMBIEN [Suspect]
     Indication: OROPHARYNGEAL SPASM
     Dosage: 40 MG Q4HR - ORAL
     Route: 048

REACTIONS (2)
  - AMNESIA [None]
  - COMA [None]
